FAERS Safety Report 23649388 (Version 1)
Quarter: 2024Q1

REPORT INFORMATION
  Report Type: Report from Study
  Country: DE (occurrence: DE)
  Receive Date: 20240319
  Receipt Date: 20240319
  Transmission Date: 20240410
  Serious: Yes (Hospitalization)
  Sender: FDA-Public Use
  Company Number: DE-JNJFOC-20240230931

PATIENT
  Sex: Female

DRUGS (5)
  1. LENALIDOMIDE [Suspect]
     Active Substance: LENALIDOMIDE
     Indication: Product used for unknown indication
     Dosage: 10 MILLIGRAM (30 DAYS AFTER THERAPY:14-FEB-2024)
     Route: 048
     Dates: start: 20240110, end: 20240115
  2. THALIDOMIDE [Suspect]
     Active Substance: THALIDOMIDE
     Indication: Product used for unknown indication
     Dosage: 100 MILLIGRAM (30 DAYS AFTER THERAPY: 16-FEB-2024)
     Route: 048
     Dates: start: 20240110, end: 20240117
  3. DARZALEX [Suspect]
     Active Substance: DARATUMUMAB
     Indication: Product used for unknown indication
     Dosage: 16 MILLIGRAM/KILOGRAM (30 DAYS AFTER THERAPY: 09-FEB-2024)
     Route: 042
     Dates: start: 20240110, end: 20240110
  4. DEXAMETHASONE [Suspect]
     Active Substance: DEXAMETHASONE
     Indication: Product used for unknown indication
     Dosage: 20 MILLIGRAM (30 DAYS AFTER THERAPY: 09-FEB-2024)
     Route: 042
     Dates: start: 20240110, end: 20240110
  5. PEMBROLIZUMAB [Concomitant]
     Active Substance: PEMBROLIZUMAB
     Dosage: UNK
     Route: 065

REACTIONS (1)
  - Malignant melanoma [Recovered/Resolved]

NARRATIVE: CASE EVENT DATE: 20240118
